FAERS Safety Report 8465720-0 (Version None)
Quarter: 2012Q2

REPORT INFORMATION
  Report Type: 
  Country: None (occurrence: None)
  Receive Date: 20120626
  Receipt Date: 20120614
  Transmission Date: 20120825
  Serious: Yes (Hospitalization)
  Sender: FDA-Public Use
  Company Number: FR-TEVA-343989ISR

PATIENT
  Sex: Female

DRUGS (10)
  1. IBUPROFEN [Suspect]
     Indication: TOOTHACHE
     Dosage: 1200 MILLIGRAM;
     Route: 048
     Dates: start: 20120326, end: 20120401
  2. AERIUS, FILM-COATED TABLET [Concomitant]
     Indication: ASTHMA
     Route: 048
  3. ALBUTEROL SULFATE [Suspect]
     Indication: ASTHMA
     Dosage: 300 MICROGRAM;
     Route: 055
     Dates: start: 20080101
  4. HUMALOG 100 IU/ML, SOLUTION FOR INJECTION [Concomitant]
     Indication: TYPE 1 DIABETES MELLITUS
     Route: 058
  5. ACETAMINOPHEN AND TRAMADOL HCL [Suspect]
     Indication: TOOTHACHE
     Dosage: 37.5MG/325MG
     Route: 048
     Dates: start: 20120326, end: 20120401
  6. LEVOTHYROX, SCORED TABLET [Concomitant]
     Indication: HYPOTHYROIDISM
     Route: 048
  7. GUETHURAL [Concomitant]
     Route: 048
  8. PRAZEPAM [Concomitant]
     Route: 048
  9. SINGULAIR [Suspect]
     Indication: ASTHMA
     Dosage: 10 MILLIGRAM;
     Route: 048
     Dates: start: 20120326
  10. SYMBICORT [Suspect]
     Indication: ASTHMA
     Dosage: 400/12 UG
     Route: 055
     Dates: start: 20090101

REACTIONS (1)
  - CEREBRAL HAEMORRHAGE [None]
